FAERS Safety Report 4626998-4 (Version None)
Quarter: 2005Q1

REPORT INFORMATION
  Report Type: 
  Country: None (occurrence: None)
  Receive Date: 20050331
  Receipt Date: 20050318
  Transmission Date: 20050727
  Serious: Yes (Hospitalization, Other)
  Sender: FDA-Public Use
  Company Number: 2005047068

PATIENT
  Age: 75 Year
  Sex: Male

DRUGS (8)
  1. DILANTIN [Suspect]
     Indication: CONVULSION
  2. DOCUSATE SODIUM (DOCUSATE SODIUM) [Concomitant]
  3. ALL OTHER THERAPEUTIC PRODUCTS (ALL OTHER THERAPEUTIC PRODUCTS) [Concomitant]
  4. ACETAMINOPHEN [Concomitant]
  5. SENNA (SENNA) [Concomitant]
  6. LACTULOSE [Concomitant]
  7. TRIMETHOPRIM [Concomitant]
  8. RISPERDAL [Concomitant]

REACTIONS (3)
  - CONVULSION [None]
  - DRUG TOXICITY [None]
  - TREATMENT NONCOMPLIANCE [None]
